FAERS Safety Report 5651917-1 (Version None)
Quarter: 2008Q1

REPORT INFORMATION
  Report Type: 
  Country: None (occurrence: None)
  Receive Date: 20080304
  Receipt Date: 20080219
  Transmission Date: 20080703
  Serious: Yes (Hospitalization)
  Sender: FDA-Public Use
  Company Number: 2008000376

PATIENT
  Sex: Male

DRUGS (1)
  1. TARCEVA [Suspect]
     Indication: PANCREATIC CARCINOMA
     Dosage: 100 MG QD ORAL
     Route: 048
     Dates: start: 20080201, end: 20080215

REACTIONS (2)
  - BLOOD COUNT ABNORMAL [None]
  - CHEST PAIN [None]
